FAERS Safety Report 26179735 (Version 1)
Quarter: 2025Q4

REPORT INFORMATION
  Report Type: Spontaneous
  Country: US (occurrence: None)
  Receive Date: 20251218
  Receipt Date: 20251218
  Transmission Date: 20260118
  Serious: Yes (Other)
  Sender: FDA-CTU
  Company Number: None

PATIENT
  Age: 72 Year
  Sex: Female
  Weight: 80.55 kg

DRUGS (7)
  1. JARDIANCE [Suspect]
     Active Substance: EMPAGLIFLOZIN
     Dosage: FREQUENCY : DAILY;
     Route: 048
  2. FAMOTIDINE [Concomitant]
     Active Substance: FAMOTIDINE
  3. ALLOPURINOL [Concomitant]
     Active Substance: ALLOPURINOL
  4. FLUTICASONE [Concomitant]
     Active Substance: FLUTICASONE
  5. FERROUS SULFATE [Concomitant]
     Active Substance: FERROUS SULFATE
  6. HYDROCHLOROTHIAZIDE\LISINOPRIL [Concomitant]
     Active Substance: HYDROCHLOROTHIAZIDE\LISINOPRIL
  7. PREGABALIN [Concomitant]
     Active Substance: PREGABALIN

REACTIONS (2)
  - Hallucination [None]
  - Nightmare [None]

NARRATIVE: CASE EVENT DATE: 20251216
